FAERS Safety Report 4355307-3 (Version None)
Quarter: 2004Q2

REPORT INFORMATION
  Report Type: 
  Country: None (occurrence: None)
  Receive Date: 20040504
  Receipt Date: 20040210
  Transmission Date: 20050107
  Serious: Yes (Other)
  Sender: FDA-Public Use
  Company Number: 200402248

PATIENT
  Age: 20 Year
  Sex: Male

DRUGS (2)
  1. IBUPROFEN [Suspect]
     Indication: BACK PAIN
  2. PSEUDOEPHEDRINE HCL [Suspect]
     Indication: SINUS HEADACHE
     Dosage: 600 MG DAILY

REACTIONS (3)
  - CALCULUS BLADDER [None]
  - HYDRONEPHROSIS [None]
  - RENAL FAILURE ACUTE [None]
